FAERS Safety Report 21704030 (Version 1)
Quarter: 2022Q4

REPORT INFORMATION
  Report Type: Spontaneous
  Country: RU (occurrence: None)
  Receive Date: 20221209
  Receipt Date: 20221209
  Transmission Date: 20230113
  Serious: Yes (Other)
  Sender: FDA-Public Use
  Company Number: RU-ROCHE-3233639

PATIENT
  Age: 36 Year

DRUGS (6)
  1. ATEZOLIZUMAB [Suspect]
     Active Substance: ATEZOLIZUMAB
     Indication: Gastrointestinal melanoma
     Route: 041
     Dates: start: 20220823
  2. ATEZOLIZUMAB [Suspect]
     Active Substance: ATEZOLIZUMAB
     Route: 042
     Dates: start: 202212
  3. VEMURAFENIB [Suspect]
     Active Substance: VEMURAFENIB
     Indication: Gastrointestinal melanoma
     Dosage: (1,440 MG/DAY) DAILY
     Route: 065
     Dates: start: 20220823
  4. VEMURAFENIB [Suspect]
     Active Substance: VEMURAFENIB
     Route: 065
     Dates: start: 202212
  5. COBIMETINIB [Suspect]
     Active Substance: COBIMETINIB
     Indication: Gastrointestinal melanoma
     Route: 048
     Dates: start: 20220823
  6. COBIMETINIB [Suspect]
     Active Substance: COBIMETINIB
     Route: 065
     Dates: start: 202212

REACTIONS (1)
  - Skin toxicity [Unknown]
